FAERS Safety Report 10163093 (Version 3)
Quarter: 2014Q2

REPORT INFORMATION
  Report Type: Report from Study
  Country: US (occurrence: US)
  Receive Date: 20140509
  Receipt Date: 20140528
  Transmission Date: 20141212
  Serious: Yes (Hospitalization)
  Sender: FDA-Public Use
  Company Number: US-ACTELION-A-NJ2014-98581

PATIENT
  Age: 57 Year
  Sex: Female

DRUGS (4)
  1. TRACLEER [Suspect]
     Indication: VENTRICULAR SEPTAL DEFECT
     Dosage: UNK
     Route: 048
  2. SILDENAFIL [Concomitant]
  3. ADCIRCA [Concomitant]
  4. REMODULIN [Concomitant]

REACTIONS (6)
  - Blood pressure abnormal [Unknown]
  - Pneumonia [Unknown]
  - Oxygen saturation abnormal [Unknown]
  - Abdominal pain upper [Unknown]
  - Back pain [Unknown]
  - Feeling abnormal [Unknown]
